FAERS Safety Report 19743664 (Version 1)
Quarter: 2021Q3

REPORT INFORMATION
  Report Type: Spontaneous
  Country: IR (occurrence: IR)
  Receive Date: 20210825
  Receipt Date: 20210825
  Transmission Date: 20211014
  Serious: Yes (Other)
  Sender: FDA-Public Use
  Company Number: IR-ABBVIE-21K-080-4050066-00

PATIENT
  Age: 71 Year
  Sex: Male

DRUGS (2)
  1. LOPINAVIR/RITONAVIR [Suspect]
     Active Substance: LOPINAVIR\RITONAVIR
     Indication: COVID-19
     Dosage: 200/50 MG
     Route: 048
  2. HYDROXYCHLOROQUINE [Suspect]
     Active Substance: HYDROXYCHLOROQUINE
     Indication: COVID-19
     Dosage: SINGLE DOSE
     Route: 065

REACTIONS (3)
  - Off label use [Unknown]
  - Bundle branch block left [Not Recovered/Not Resolved]
  - Atrioventricular block second degree [Not Recovered/Not Resolved]
